FAERS Safety Report 9702004 (Version 3)
Quarter: 2013Q4

REPORT INFORMATION
  Report Type: Report from Study
  Country: BE (occurrence: BE)
  Receive Date: 20131121
  Receipt Date: 20131125
  Transmission Date: 20140711
  Serious: Yes (Death, Hospitalization)
  Sender: FDA-Public Use
  Company Number: BE-PFIZER INC-2013322458

PATIENT
  Age: 75 Year
  Sex: Male
  Weight: 74 kg

DRUGS (1)
  1. CRIZOTINIB [Suspect]
     Indication: RENAL CELL CARCINOMA
     Dosage: 250 MG, 2X/DAY
     Route: 048
     Dates: start: 20130822, end: 20131106

REACTIONS (1)
  - Interstitial lung disease [Fatal]
